FAERS Safety Report 6294875-1 (Version None)
Quarter: 2009Q3

REPORT INFORMATION
  Report Type: 
  Country: None (occurrence: None)
  Receive Date: 20090803
  Receipt Date: 20090728
  Transmission Date: 20100115
  Serious: Yes (Death, Hospitalization)
  Sender: FDA-Public Use
  Company Number: IN-ELI_LILLY_AND_COMPANY-IN200907006387

PATIENT
  Age: 81 Year
  Sex: Male

DRUGS (2)
  1. XIGRIS [Suspect]
     Indication: PNEUMONIA
     Dates: start: 20090728
  2. ANTIBIOTICS [Concomitant]
     Indication: PNEUMONIA
     Dates: start: 20090727

REACTIONS (1)
  - CARDIAC ARREST [None]
